FAERS Safety Report 9438961 (Version 2)
Quarter: 2013Q3

REPORT INFORMATION
  Report Type: Spontaneous
  Country: US (occurrence: US)
  Receive Date: 20130802
  Receipt Date: 20130911
  Transmission Date: 20140515
  Serious: Yes (Other)
  Sender: FDA-Public Use
  Company Number: US-009507513-1307USA017016

PATIENT
  Age: 59 Year
  Sex: Male

DRUGS (5)
  1. PEGINTRON [Suspect]
     Indication: ANTIVIRAL TREATMENT
     Dosage: 150 MICROGRAM, WEEKLY
     Route: 058
     Dates: start: 20130118, end: 20130718
  2. PEGINTRON [Suspect]
     Dosage: 80 MICROGRAM, WEEKLY
     Route: 058
     Dates: start: 20130719
  3. REBETOL [Suspect]
     Dosage: 600 MG, TWICE A DAY
     Route: 048
     Dates: start: 20130118
  4. REBETOL [Suspect]
     Dosage: 400 MG, TWICE A DAY
     Route: 048
  5. VICTRELIS [Suspect]
     Dosage: UNK
     Route: 048
     Dates: start: 20130215

REACTIONS (2)
  - Transfusion [Unknown]
  - Anaemia [Unknown]
